FAERS Safety Report 18358526 (Version 2)
Quarter: 2021Q1

REPORT INFORMATION
  Report Type: Spontaneous
  Country: US (occurrence: US)
  Receive Date: 20201008
  Receipt Date: 20210305
  Transmission Date: 20210419
  Serious: Yes (Death, Hospitalization)
  Sender: FDA-Public Use
  Company Number: US-ROCHE-2691216

PATIENT
  Age: 74 Year
  Sex: Male

DRUGS (30)
  1. CETIRIZINE [Concomitant]
     Active Substance: CETIRIZINE HYDROCHLORIDE
  2. CYCLOBENZAPRINE. [Concomitant]
     Active Substance: CYCLOBENZAPRINE
  3. DOXYCYCLINE HYCLATE. [Concomitant]
     Active Substance: DOXYCYCLINE HYCLATE
  4. LOSARTAN POTASSIUM. [Concomitant]
     Active Substance: LOSARTAN POTASSIUM
  5. NYSTATIN. [Concomitant]
     Active Substance: NYSTATIN
  6. VERAPAMIL [Concomitant]
     Active Substance: VERAPAMIL HYDROCHLORIDE
  7. LATANOPROST. [Concomitant]
     Active Substance: LATANOPROST
  8. SENNA [Concomitant]
     Active Substance: SENNA LEAF\SENNOSIDES\SENNOSIDES A AND B
  9. VENTOLIN HFA [Concomitant]
     Active Substance: ALBUTEROL SULFATE
  10. PENICILLIN VK [Concomitant]
     Active Substance: PENICILLIN V POTASSIUM
  11. ESBRIET [Suspect]
     Active Substance: PIRFENIDONE
     Indication: IDIOPATHIC PULMONARY FIBROSIS
     Route: 048
     Dates: start: 20190830
  12. MI?ACID GAS RELIEF [Concomitant]
     Active Substance: DIMETHICONE
  13. SUMATRIPTAN. [Concomitant]
     Active Substance: SUMATRIPTAN
  14. TRAZODONE [Concomitant]
     Active Substance: TRAZODONE HYDROCHLORIDE
  15. ADVAIR DISKUS [Concomitant]
     Active Substance: FLUTICASONE PROPIONATE\SALMETEROL XINAFOATE
  16. LANTUS [Concomitant]
     Active Substance: INSULIN GLARGINE
  17. GABAPENTIN. [Concomitant]
     Active Substance: GABAPENTIN
  18. SOTALOL HCL [Concomitant]
     Active Substance: SOTALOL
  19. BENZONATATE. [Concomitant]
     Active Substance: BENZONATATE
  20. LIDOCAINE. [Concomitant]
     Active Substance: LIDOCAINE
  21. METHYLPREDNISOLONE. [Concomitant]
     Active Substance: METHYLPREDNISOLONE
  22. OXYCODONE [Concomitant]
     Active Substance: OXYCODONE
  23. PANTOPRAZOLE [Concomitant]
     Active Substance: PANTOPRAZOLE
  24. POLYETHYLENE GLYCOL [Concomitant]
     Active Substance: POLYETHYLENE GLYCOLS
  25. ACETAMIN [Concomitant]
     Active Substance: ACETAMINOPHEN
  26. APAP;CODEINE [Concomitant]
  27. ATORVASTATIN [Concomitant]
     Active Substance: ATORVASTATIN
  28. ELIQUIS [Concomitant]
     Active Substance: APIXABAN
  29. FLECAINIDE [Concomitant]
     Active Substance: FLECAINIDE
  30. NARCAN [Concomitant]
     Active Substance: NALOXONE HYDROCHLORIDE

REACTIONS (3)
  - Pneumonia [Fatal]
  - Dyspnoea [Unknown]
  - COVID-19 [Fatal]

NARRATIVE: CASE EVENT DATE: 20201001
